FAERS Safety Report 10783318 (Version 1)
Quarter: 2015Q1

REPORT INFORMATION
  Report Type: Spontaneous
  Country: US (occurrence: US)
  Receive Date: 20150210
  Receipt Date: 20150210
  Transmission Date: 20150721
  Serious: No
  Sender: FDA-Public Use
  Company Number: US-GLAXOSMITHKLINE-A1085707A

PATIENT

DRUGS (6)
  1. FIORICET [Concomitant]
     Active Substance: ACETAMINOPHEN\BUTALBITAL\CAFFEINE
  2. ADVAIR HFA [Concomitant]
     Active Substance: FLUTICASONE PROPIONATE\SALMETEROL XINAFOATE
  3. SUMATRIPTAN SUCCINATE TABLET [Suspect]
     Active Substance: SUMATRIPTAN SUCCINATE
     Indication: MIGRAINE
     Route: 048
     Dates: start: 2013, end: 2013
  4. SINGULAIR [Concomitant]
     Active Substance: MONTELUKAST SODIUM
  5. NEURONTIN [Concomitant]
     Active Substance: GABAPENTIN
  6. PAXIL [Concomitant]
     Active Substance: PAROXETINE HYDROCHLORIDE

REACTIONS (3)
  - Drug ineffective [Unknown]
  - Therapeutic response delayed [Unknown]
  - Medication overuse headache [Unknown]

NARRATIVE: CASE EVENT DATE: 2013
